FAERS Safety Report 18122308 (Version 1)
Quarter: 2020Q3

REPORT INFORMATION
  Report Type: Report from Study
  Country: FR (occurrence: FR)
  Receive Date: 20200807
  Receipt Date: 20200807
  Transmission Date: 20201103
  Serious: Yes (Other)
  Sender: FDA-Public Use
  Company Number: FR-AUROBINDO-AUR-APL-2019-053767

PATIENT
  Age: 8 Year
  Sex: Female

DRUGS (1)
  1. CETIRIZINE FILM?COATED TABLET 10 MG [Suspect]
     Active Substance: CETIRIZINE HYDROCHLORIDE
     Indication: PRODUCT USED FOR UNKNOWN INDICATION
     Dosage: 2 DOSAGE FORM,TWO 10 MG TABLETS OF CETIRIZINE (0.65 MG/KG)
     Route: 048

REACTIONS (6)
  - Restlessness [Unknown]
  - Toxicity to various agents [Unknown]
  - Intentional overdose [Unknown]
  - Hallucination [Unknown]
  - Aggression [Unknown]
  - Dry mouth [Unknown]
